FAERS Safety Report 17224013 (Version 1)
Quarter: 2020Q1

REPORT INFORMATION
  Report Type: Other
  Country: GB (occurrence: GB)
  Receive Date: 20200102
  Receipt Date: 20200102
  Transmission Date: 20200409
  Serious: Yes (Congenital Anomaly, Other)
  Sender: FDA-Public Use
  Company Number: GB-MACLEODS PHARMACEUTICALS US LTD-MAC2019024404

PATIENT

DRUGS (3)
  1. LOPINAVIR/RITONAVIR [Suspect]
     Active Substance: LOPINAVIR\RITONAVIR
     Indication: HIV INFECTION
     Dosage: UNK, PRIOR TO CONCEPTION
     Route: 065
  2. TRUVADA [Suspect]
     Active Substance: EMTRICITABINE\TENOFOVIR DISOPROXIL FUMARATE
     Indication: HIV INFECTION
     Dosage: 1 DOSAGE FORM, 1 COURSE DURING FIRST TRIMESTER
     Route: 064
  3. NEVIRAPINE 400 MG [Suspect]
     Active Substance: NEVIRAPINE
     Indication: HIV INFECTION
     Dosage: 1 COURSE OF 400 MILLIGRAM, QD, EXPOSURE DURING FIRST TRIMESTER
     Route: 064

REACTIONS (3)
  - Speech disorder developmental [Unknown]
  - Foetal exposure during pregnancy [Unknown]
  - Developmental delay [Unknown]
